FAERS Safety Report 8114248-6 (Version None)
Quarter: 2012Q1

REPORT INFORMATION
  Report Type: 
  Country: None (occurrence: None)
  Receive Date: 20120206
  Receipt Date: 20120123
  Transmission Date: 20120608
  Serious: Yes (Death, Hospitalization)
  Sender: FDA-Public Use
  Company Number: AR-AMGEN-ARGSP2012003504

PATIENT
  Age: 73 Year
  Sex: Male

DRUGS (2)
  1. MEMANTINE [Concomitant]
     Dosage: UNK
  2. ENBREL [Suspect]
     Indication: PSORIATIC ARTHROPATHY
     Dosage: 50 MG, WEEKLY
     Route: 058
     Dates: start: 20081010, end: 20110601

REACTIONS (1)
  - PNEUMONIA [None]
